FAERS Safety Report 13712959 (Version 2)
Quarter: 2017Q3

REPORT INFORMATION
  Report Type: Spontaneous
  Country: DE (occurrence: DE)
  Receive Date: 20170704
  Receipt Date: 20170922
  Transmission Date: 20171127
  Serious: Yes (Hospitalization, Other)
  Sender: FDA-Public Use
  Company Number: PHHY2017DE093290

PATIENT
  Sex: Male

DRUGS (1)
  1. AFINITOR [Suspect]
     Active Substance: EVEROLIMUS
     Indication: RENAL CELL CARCINOMA
     Dosage: 10 MG, QD
     Route: 048
     Dates: start: 201702, end: 20170622

REACTIONS (5)
  - Deep vein thrombosis [Unknown]
  - Acute myocardial infarction [Unknown]
  - Anaemia [Unknown]
  - Malignant neoplasm progression [Unknown]
  - Metastases to spine [Recovered/Resolved with Sequelae]

NARRATIVE: CASE EVENT DATE: 201702
